FAERS Safety Report 24402660 (Version 1)
Quarter: 2024Q4

REPORT INFORMATION
  Report Type: Spontaneous
  Country: US (occurrence: US)
  Receive Date: 20241007
  Receipt Date: 20241007
  Transmission Date: 20250114
  Serious: No
  Sender: RANBAXY
  Company Number: US-SUN PHARMACEUTICAL INDUSTRIES LTD-2024R1-437214

PATIENT
  Sex: Female

DRUGS (1)
  1. CEQUA [Suspect]
     Active Substance: CYCLOSPORINE
     Indication: Product used for unknown indication
     Dosage: UNK
     Route: 065
     Dates: start: 20240119

REACTIONS (7)
  - Hypersensitivity [Unknown]
  - Eye pruritus [Unknown]
  - Eye irritation [Unknown]
  - Pruritus [Unknown]
  - Skin burning sensation [Unknown]
  - Eye swelling [Unknown]
  - Swelling face [Unknown]
